FAERS Safety Report 10046733 (Version 2)
Quarter: 2014Q2

REPORT INFORMATION
  Report Type: Report from Study
  Country: DE (occurrence: DE)
  Receive Date: 20140331
  Receipt Date: 20140421
  Transmission Date: 20141212
  Serious: Yes (Death)
  Sender: FDA-Public Use
  Company Number: DE-ROCHE-1373751

PATIENT
  Age: 51 Year
  Sex: Female
  Weight: 63.5 kg

DRUGS (6)
  1. BEVACIZUMAB [Suspect]
     Indication: BREAST CANCER
     Route: 065
     Dates: start: 20120703, end: 20120703
  2. BEVACIZUMAB [Suspect]
     Route: 065
     Dates: start: 20121030, end: 20121030
  3. XELODA [Concomitant]
     Indication: BREAST CANCER
     Route: 065
     Dates: start: 20120703, end: 20120726
  4. XELODA [Concomitant]
     Route: 065
     Dates: start: 20120821, end: 20120919
  5. XELODA [Concomitant]
     Route: 065
     Dates: start: 20121011, end: 20121030
  6. TAZOBACTAM [Concomitant]
     Route: 065
     Dates: start: 20121216, end: 20121228

REACTIONS (1)
  - Pleural effusion [Fatal]
